FAERS Safety Report 15579088 (Version 2)
Quarter: 2018Q4

REPORT INFORMATION
  Report Type: Report from Study
  Country: US (occurrence: US)
  Receive Date: 20181102
  Receipt Date: 20181120
  Transmission Date: 20190205
  Serious: Yes (Other)
  Sender: FDA-Public Use
  Company Number: US-SA-2015SA181950

PATIENT
  Age: 48 Year
  Sex: Female

DRUGS (12)
  1. VITAMIN C [Concomitant]
     Active Substance: ASCORBIC ACID
     Dosage: 600 MG, QD
     Route: 065
     Dates: start: 20160720
  2. PLEXUS SLIM [Concomitant]
     Dosage: UNK UNK, QD
     Route: 065
     Dates: start: 20160720
  3. SYNTHROID [Concomitant]
     Active Substance: LEVOTHYROXINE SODIUM
     Dosage: 100 UG, QD
     Route: 065
     Dates: start: 20181030
  4. ALEMTUZUMAB [Suspect]
     Active Substance: ALEMTUZUMAB
     Dosage: 12 MG, QD
     Route: 041
     Dates: start: 2016, end: 20161102
  5. ALEMTUZUMAB [Suspect]
     Active Substance: ALEMTUZUMAB
     Indication: MULTIPLE SCLEROSIS
     Dosage: 12 MG,QD
     Route: 041
     Dates: start: 20151026, end: 20151030
  6. CALCIUM +D [CALCIUM;ERGOCALCIFEROL] [Concomitant]
     Dosage: 600 MG, QD
     Route: 065
     Dates: start: 20160210
  7. VYVANSE [Concomitant]
     Active Substance: LISDEXAMFETAMINE DIMESYLATE
     Dosage: 30 MG, QD
     Route: 065
  8. PROBIO 5 [Concomitant]
     Dosage: UNK UNK, QD
     Route: 065
     Dates: start: 20160720
  9. CLEMASTINE [Concomitant]
     Active Substance: CLEMASTINE
     Dosage: 3 DF, QD (2.68 MG, 1 PO Q AM AND TWO PO QHS)
     Route: 048
     Dates: start: 20180502
  10. GABAPENTIN. [Concomitant]
     Active Substance: GABAPENTIN
     Dosage: 3 DF, BID (800 MG)
     Route: 048
     Dates: start: 20180801
  11. LEVOTHYROXINE. [Concomitant]
     Active Substance: LEVOTHYROXINE
     Dosage: 3 DF, QD (75 MCG)
     Route: 048
     Dates: start: 20181019
  12. VITAMIN D [Concomitant]
     Active Substance: CHOLECALCIFEROL
     Dosage: 5000 IU, BID
     Route: 065
     Dates: start: 20160210

REACTIONS (4)
  - Autoimmune disorder [Not Recovered/Not Resolved]
  - Cystitis [Recovering/Resolving]
  - Fall [Recovering/Resolving]
  - Micturition urgency [Recovering/Resolving]

NARRATIVE: CASE EVENT DATE: 2015
